FAERS Safety Report 7356720-2 (Version None)
Quarter: 2011Q1

REPORT INFORMATION
  Report Type: 
  Country: None (occurrence: None)
  Receive Date: 20110316
  Receipt Date: 20110310
  Transmission Date: 20110831
  Serious: Yes (Other)
  Sender: FDA-Public Use
  Company Number: ZA-ABBOTT-11P-143-0710926-00

PATIENT
  Sex: Male

DRUGS (4)
  1. ULTANE [Suspect]
     Indication: CARDIAC OPERATION
     Dates: start: 20110310, end: 20110310
  2. PERFALGAN [Concomitant]
     Indication: PAIN
     Dates: start: 20110310
  3. UNKNOWN ANTIEMITIC [Concomitant]
     Indication: PROCEDURAL NAUSEA
     Dates: start: 20110310
  4. PRECEDEX [Interacting]
     Indication: CARDIAC OPERATION
     Dates: start: 20110310, end: 20110310

REACTIONS (2)
  - HYPOTENSION [None]
  - DRUG INTERACTION [None]
